FAERS Safety Report 8571512-4 (Version None)
Quarter: 2012Q3

REPORT INFORMATION
  Report Type: 
  Country: None (occurrence: None)
  Receive Date: 20120806
  Receipt Date: 20120726
  Transmission Date: 20120928
  Serious: Yes (Hospitalization, Other)
  Sender: FDA-Public Use
  Company Number: IE-JNJFOC-20120713563

PATIENT
  Sex: Male

DRUGS (1)
  1. REMICADE [Suspect]
     Indication: ANKYLOSING SPONDYLITIS
     Route: 042
     Dates: start: 20120622

REACTIONS (9)
  - PARAESTHESIA [None]
  - CHEST PAIN [None]
  - HEADACHE [None]
  - INFUSION RELATED REACTION [None]
  - BODY TEMPERATURE INCREASED [None]
  - FEELING OF BODY TEMPERATURE CHANGE [None]
  - FLUSHING [None]
  - VOMITING [None]
  - RASH [None]
